FAERS Safety Report 8254779-1 (Version None)
Quarter: 2012Q2

REPORT INFORMATION
  Report Type: 
  Country: None (occurrence: None)
  Receive Date: 20120403
  Receipt Date: 20120327
  Transmission Date: 20120825
  Serious: Yes (Other)
  Sender: FDA-Public Use
  Company Number: PHHY2012CY026332

PATIENT
  Sex: Female
  Weight: 50 kg

DRUGS (1)
  1. EXJADE [Suspect]
     Indication: IRON OVERLOAD
     Dosage: 40 MG/KG, UNK
     Dates: start: 20110601, end: 20120220

REACTIONS (2)
  - PREGNANCY ON CONTRACEPTIVE [None]
  - MATERNAL EXPOSURE DURING PREGNANCY [None]
